FAERS Safety Report 17717933 (Version 1)
Quarter: 2020Q2

REPORT INFORMATION
  Report Type: Spontaneous
  Country: US (occurrence: US)
  Receive Date: 20200428
  Receipt Date: 20200428
  Transmission Date: 20200714
  Serious: Yes (Other)
  Sender: FDA-Public Use
  Company Number: US-PFIZER INC-2020114959

PATIENT
  Age: 74 Year

DRUGS (1)
  1. NORPACE [Suspect]
     Active Substance: DISOPYRAMIDE PHOSPHATE
     Dosage: UNK [QUALITY FOR 90 DAYS: 120]

REACTIONS (2)
  - Cerebrovascular accident [Unknown]
  - Confusional state [Unknown]
